FAERS Safety Report 5139838-4 (Version None)
Quarter: 2006Q4

REPORT INFORMATION
  Report Type: 
  Country: None (occurrence: None)
  Receive Date: 20061025
  Receipt Date: 20061025
  Transmission Date: 20070319
  Serious: Yes (Other)
  Sender: FDA-Public Use
  Company Number: None

PATIENT
  Age: 40 Year
  Sex: Male
  Weight: 93 kg

DRUGS (1)
  1. ISOVUE-300 [Suspect]
     Indication: SCAN WITH CONTRAST
     Dosage: 130 ML IV
     Route: 042

REACTIONS (3)
  - NASAL CONGESTION [None]
  - PROCEDURAL COMPLICATION [None]
  - SNEEZING [None]
